FAERS Safety Report 13908022 (Version 1)
Quarter: 2017Q3

REPORT INFORMATION
  Report Type: Spontaneous
  Country: US (occurrence: US)
  Receive Date: 20170825
  Receipt Date: 20170825
  Transmission Date: 20171127
  Serious: No
  Sender: FDA-Public Use
  Company Number: US-ROCHE-1112183

PATIENT
  Sex: Male

DRUGS (2)
  1. HUMANALBIN 5% [Concomitant]
     Route: 065
     Dates: start: 1994
  2. NUTROPIN [Suspect]
     Active Substance: SOMATROPIN
     Indication: DWARFISM

REACTIONS (4)
  - Weight decreased [Unknown]
  - Ill-defined disorder [Unknown]
  - Fat tissue increased [Unknown]
  - Lethargy [Unknown]
